FAERS Safety Report 9916378 (Version 3)
Quarter: 2014Q2

REPORT INFORMATION
  Report Type: Spontaneous
  Country: US (occurrence: US)
  Receive Date: 20140221
  Receipt Date: 20140414
  Transmission Date: 20141212
  Serious: Yes (Hospitalization, Other)
  Sender: FDA-Public Use
  Company Number: US-JNJFOC-20140208575

PATIENT
  Sex: Male

DRUGS (2)
  1. NUCYNTA ER [Suspect]
     Indication: NEURALGIA
     Dosage: TWICE DAILY
     Route: 048
  2. NUCYNTA [Suspect]
     Indication: NEURALGIA
     Dosage: AS NECESSARY
     Route: 048

REACTIONS (5)
  - Myocardial infarction [Recovered/Resolved]
  - Drug dependence [Not Recovered/Not Resolved]
  - Drug withdrawal syndrome [Recovered/Resolved]
  - Breakthrough pain [Not Recovered/Not Resolved]
  - Drug dose omission [Recovered/Resolved]
